FAERS Safety Report 10777582 (Version 2)
Quarter: 2018Q4

REPORT INFORMATION
  Report Type: Spontaneous
  Country: US (occurrence: US)
  Receive Date: 20150209
  Receipt Date: 20181211
  Transmission Date: 20190204
  Serious: Yes (Other)
  Sender: FDA-Public Use
  Company Number: US-TEVA-538756USA

PATIENT
  Age: 19 Year
  Sex: Female
  Weight: 108.96 kg

DRUGS (2)
  1. PHENTERMINE. [Concomitant]
     Active Substance: PHENTERMINE
     Dates: start: 20150129
  2. TAKE ACTION [Suspect]
     Active Substance: LEVONORGESTREL
     Indication: POST COITAL CONTRACEPTION
     Dosage: 1.5 MILLIGRAM DAILY;
     Route: 048
     Dates: start: 20141215, end: 20141215

REACTIONS (10)
  - Abdominal pain [Recovered/Resolved]
  - Dysmenorrhoea [Recovered/Resolved]
  - Menstruation irregular [Recovered/Resolved]
  - Menstruation irregular [Recovered/Resolved]
  - Menorrhagia [Recovered/Resolved]
  - Menorrhagia [Recovered/Resolved]
  - Menstruation irregular [Recovered/Resolved]
  - Maternal exposure before pregnancy [Unknown]
  - Abdominal pain [Not Recovered/Not Resolved]
  - Pregnancy after post coital contraception [Recovered/Resolved]

NARRATIVE: CASE EVENT DATE: 20141221
